FAERS Safety Report 13069544 (Version 1)
Quarter: 2016Q4

REPORT INFORMATION
  Report Type: Spontaneous
  Country: US (occurrence: US)
  Receive Date: 20161228
  Receipt Date: 20161228
  Transmission Date: 20170207
  Serious: Yes (Hospitalization, Disabling)
  Sender: FDA-Public Use
  Company Number: US-009507513-1612USA010101

PATIENT
  Age: 24 Year
  Sex: Female
  Weight: 70.3 kg

DRUGS (3)
  1. AMITRIPTYLINE HYDROCHLORIDE. [Concomitant]
     Active Substance: AMITRIPTYLINE HYDROCHLORIDE
  2. NEXPLANON [Suspect]
     Active Substance: ETONOGESTREL
     Indication: ENDOMETRIOSIS
     Dosage: 3 YEAR IMPLANT, IN THE LEFT ARM
     Route: 059
     Dates: start: 20160111
  3. METHYLDOPA. [Concomitant]
     Active Substance: METHYLDOPA

REACTIONS (6)
  - Abasia [Unknown]
  - Pyrexia [Unknown]
  - Coordination abnormal [Unknown]
  - Myalgia [Unknown]
  - Product use issue [Unknown]
  - Migraine [Unknown]

NARRATIVE: CASE EVENT DATE: 201601
